FAERS Safety Report 17096662 (Version 1)
Quarter: 2019Q4

REPORT INFORMATION
  Report Type: Spontaneous
  Country: CA (occurrence: CA)
  Receive Date: 20191202
  Receipt Date: 20191202
  Transmission Date: 20200122
  Serious: Yes (Hospitalization, Other)
  Sender: FDA-Public Use
  Company Number: CA-TEVA-2019-CA-1143888

PATIENT
  Age: 13 Year
  Sex: Male
  Weight: 60 kg

DRUGS (13)
  1. METHOTREXATE. [Suspect]
     Active Substance: METHOTREXATE
     Indication: ACUTE LYMPHOCYTIC LEUKAEMIA
     Route: 042
  2. CYTARABINE INJECTION [Concomitant]
     Active Substance: CYTARABINE
  3. METHYLPREDNISOLONE NOS [Concomitant]
     Active Substance: METHYLPREDNISOLONE
  4. VINCRISTINE SULFATE. [Concomitant]
     Active Substance: VINCRISTINE SULFATE
  5. ASPARAGINASE (E.COLI) [Concomitant]
     Active Substance: ASPARAGINASE
  6. DEXAMETHASONE. [Concomitant]
     Active Substance: DEXAMETHASONE
  7. ETOPOSIDE. [Concomitant]
     Active Substance: ETOPOSIDE
  8. CYTARABINE INJECTION [Concomitant]
     Active Substance: CYTARABINE
  9. DOXORUBICIN LIPOSOMAL [Concomitant]
     Active Substance: DOXORUBICIN
  10. PEG-L-ASPARAGINASE [Concomitant]
     Active Substance: PEGASPARGASE
  11. CYCLOPHOSPHAMIDE. [Concomitant]
     Active Substance: CYCLOPHOSPHAMIDE
  12. MERCAPTOPURINE. [Concomitant]
     Active Substance: MERCAPTOPURINE
  13. PREDNISONE. [Concomitant]
     Active Substance: PREDNISONE

REACTIONS (4)
  - Mucosal inflammation [Recovering/Resolving]
  - Osteonecrosis of jaw [Recovering/Resolving]
  - Toxicity to various agents [Recovering/Resolving]
  - Stomatitis necrotising [Recovering/Resolving]
